FAERS Safety Report 22397114 (Version 4)
Quarter: 2024Q4

REPORT INFORMATION
  Report Type: Spontaneous
  Country: CN (occurrence: CN)
  Receive Date: 20230602
  Receipt Date: 20241121
  Transmission Date: 20250114
  Serious: Yes (Life-Threatening, Other)
  Sender: CHEPLAPHARM
  Company Number: CN-ROCHE-3354159

PATIENT
  Age: 51 Year
  Sex: Male
  Weight: 83 kg

DRUGS (7)
  1. CAPECITABINE [Suspect]
     Active Substance: CAPECITABINE
     Indication: Rectal cancer
     Dosage: 5 DAYS IN 1 WEEK
     Route: 048
     Dates: start: 20230118
  2. CAPECITABINE [Suspect]
     Active Substance: CAPECITABINE
     Indication: Rectal cancer
     Dosage: 5 DAYS IN 1 WEEK, MOST RECENT DOSE OF CAPECITABINE PRIOR TO SAE/AESI/SPECIAL SITUATION ONSET
     Route: 048
     Dates: start: 20230301
  3. ATEZOLIZUMAB [Suspect]
     Active Substance: ATEZOLIZUMAB
     Indication: Rectal cancer
     Dosage: INTRAVENOUS DRIP, DATE OF MOST RECENT DOSE OF ATEZOLIZUMAB PRIOR TO AE ONSET 27/APR/2023
     Route: 042
     Dates: start: 20230317
  4. ATEZOLIZUMAB [Suspect]
     Active Substance: ATEZOLIZUMAB
     Indication: Rectal cancer
     Dosage: INTRAVENOUS DRIP
     Route: 042
     Dates: start: 20230427
  5. CLOPIDOGREL BISULFATE [Concomitant]
     Active Substance: CLOPIDOGREL BISULFATE
     Dates: start: 20230517, end: 20230525
  6. ADENOSINE CYCLIC PHOSPHATE MEGLUMINE [Concomitant]
     Active Substance: ADENOSINE CYCLIC PHOSPHATE MEGLUMINE
     Dates: start: 20230518, end: 20230522
  7. METOPROLOL TARTRATE [Concomitant]
     Active Substance: METOPROLOL TARTRATE
     Dates: start: 20230620, end: 20230620

REACTIONS (4)
  - Myocardial infarction [Not Recovered/Not Resolved]
  - Myocardial infarction [Not Recovered/Not Resolved]
  - Arteriosclerosis coronary artery [Not Recovered/Not Resolved]
  - Vital functions abnormal [Recovered/Resolved]

NARRATIVE: CASE EVENT DATE: 20230509
